FAERS Safety Report 17681305 (Version 1)
Quarter: 2020Q2

REPORT INFORMATION
  Report Type: Spontaneous
  Country: NL (occurrence: NL)
  Receive Date: 20200417
  Receipt Date: 20200417
  Transmission Date: 20200714
  Serious: Yes (Other)
  Sender: FDA-Public Use
  Company Number: NL-AMGEN-NLDSP2020062322

PATIENT
  Sex: Male
  Weight: 82 kg

DRUGS (5)
  1. ADALIMUMAB [Suspect]
     Active Substance: ADALIMUMAB
     Indication: PSORIATIC ARTHROPATHY
     Dosage: UNK UNK, Q4WK
     Route: 065
     Dates: start: 201602
  2. METOPROLOL. [Concomitant]
     Active Substance: METOPROLOL
     Dosage: TABLET MET GEREGULEERDE AFGIFTE, 100 MG (MILLIGRAM)
  3. FOLIUMZUUR [Concomitant]
     Active Substance: FOLIC ACID
     Dosage: 5 MILLIGRAM
  4. FOSINOPRIL [Concomitant]
     Active Substance: FOSINOPRIL
     Dosage: 20 MILLIGRAM
  5. METHOTREXAAT [METHOTREXATE] [Concomitant]
     Active Substance: METHOTREXATE
     Dosage: TABLET, 2,5 MG (MILLIGRAM)

REACTIONS (1)
  - Hyperthyroidism [Recovered/Resolved]
